FAERS Safety Report 25011865 (Version 2)
Quarter: 2025Q1

REPORT INFORMATION
  Report Type: Spontaneous
  Country: US (occurrence: None)
  Receive Date: 20250226
  Receipt Date: 20250306
  Transmission Date: 20250409
  Serious: Yes (Hospitalization)
  Sender: AXSOME THERAPEUTICS, INC.
  Company Number: US-Axsome Therapeutics, Inc.-AXS202501-000108

PATIENT
  Age: 56 Year
  Sex: Female

DRUGS (2)
  1. AUVELITY [Suspect]
     Active Substance: BUPROPION HYDROCHLORIDE\DEXTROMETHORPHAN HYDROBROMIDE
     Indication: Major depression
     Route: 065
     Dates: start: 202407
  2. NEXIUM [Concomitant]
     Active Substance: ESOMEPRAZOLE MAGNESIUM
     Indication: Gastrooesophageal reflux disease
     Route: 065

REACTIONS (7)
  - Localised infection [Unknown]
  - Blepharospasm [Unknown]
  - Blepharospasm [Unknown]
  - Dry eye [Unknown]
  - Feeling hot [Unknown]
  - Hyperhidrosis [Unknown]
  - Dry mouth [Unknown]

NARRATIVE: CASE EVENT DATE: 20240701
